FAERS Safety Report 4491370-7 (Version None)
Quarter: 2004Q4

REPORT INFORMATION
  Report Type: 
  Country: None (occurrence: None)
  Receive Date: 20041029
  Receipt Date: 20041019
  Transmission Date: 20050328
  Serious: Yes (Hospitalization, Other)
  Sender: FDA-Public Use
  Company Number: HQWYE614607OCT04

PATIENT
  Age: 59 Year
  Sex: Male
  Weight: 84.4 kg

DRUGS (1)
  1. MYLOTARG [Suspect]
     Indication: ACUTE MYELOID LEUKAEMIA
     Dosage: 18 MG 1X PER 1 DAY, INTRAVENOUS
     Route: 042
     Dates: start: 20040527, end: 20040527

REACTIONS (12)
  - BLOOD CULTURE POSITIVE [None]
  - CHILLS [None]
  - DYSPNOEA [None]
  - EPISTAXIS [None]
  - FATIGUE [None]
  - HAEMATOCRIT DECREASED [None]
  - HAEMOGLOBIN DECREASED [None]
  - INFUSION RELATED REACTION [None]
  - PLATELET COUNT DECREASED [None]
  - PYREXIA [None]
  - STAPHYLOCOCCAL INFECTION [None]
  - WHITE BLOOD CELL COUNT DECREASED [None]
